FAERS Safety Report 12336812 (Version 1)
Quarter: 2016Q2

REPORT INFORMATION
  Report Type: Spontaneous
  Country: CA (occurrence: CA)
  Receive Date: 20160505
  Receipt Date: 20160505
  Transmission Date: 20160815
  Serious: Yes (Other)
  Sender: FDA-Public Use
  Company Number: CA-JNJFOC-20160500888

PATIENT
  Sex: Male

DRUGS (1)
  1. CONCERTA [Suspect]
     Active Substance: METHYLPHENIDATE HYDROCHLORIDE
     Indication: ATTENTION DEFICIT/HYPERACTIVITY DISORDER
     Route: 048

REACTIONS (9)
  - Anxiety [Unknown]
  - Fatigue [Unknown]
  - Stress [Unknown]
  - Thirst [Unknown]
  - Arrhythmia [Unknown]
  - Decreased appetite [Unknown]
  - Nausea [Unknown]
  - Insomnia [Unknown]
  - Apathy [Unknown]
